FAERS Safety Report 9607364 (Version 1)
Quarter: 2013Q4

REPORT INFORMATION
  Report Type: Spontaneous
  Country: US (occurrence: None)
  Receive Date: 20131007
  Receipt Date: 20131007
  Transmission Date: 20140711
  Serious: Yes (Hospitalization)
  Sender: FDA-Public Use
  Company Number: None

PATIENT
  Age: 31 Year
  Sex: Female
  Weight: 127.01 kg

DRUGS (1)
  1. MIRENA [Suspect]
     Dates: end: 20131001

REACTIONS (2)
  - Embedded device [None]
  - Pregnancy [None]
